FAERS Safety Report 7693475-6 (Version None)
Quarter: 2011Q3

REPORT INFORMATION
  Report Type: 
  Country: None (occurrence: None)
  Receive Date: 20110819
  Receipt Date: 20110819
  Transmission Date: 20111222
  Serious: Yes (Hospitalization)
  Sender: FDA-Public Use
  Company Number: None

PATIENT
  Age: 37 Year
  Sex: Male
  Weight: 102.05 kg

DRUGS (1)
  1. LIALDA [Suspect]
     Indication: COLITIS ULCERATIVE
     Dosage: 4.8G
     Route: 048
     Dates: start: 20110625, end: 20110725

REACTIONS (4)
  - CHEST PAIN [None]
  - COLITIS ULCERATIVE [None]
  - PERICARDITIS [None]
  - PNEUMONITIS [None]
